FAERS Safety Report 5455656-1 (Version None)
Quarter: 2007Q3

REPORT INFORMATION
  Report Type: 
  Country: None (occurrence: None)
  Receive Date: 20070913
  Receipt Date: 20070913
  Transmission Date: 20080115
  Serious: Yes (Other)
  Sender: FDA-Public Use
  Company Number: None

PATIENT
  Age: 60 Year
  Sex: Female
  Weight: 72.5 kg

DRUGS (9)
  1. FOSPHENYTOIN SODIUM [Suspect]
     Indication: CONVULSION
     Dosage: 1000MG ONCE IV BOLUS
     Route: 040
     Dates: start: 20070909, end: 20070909
  2. MORPHINE [Concomitant]
  3. HYDRALAZINE HCL [Concomitant]
  4. FOSPHENYTOIN SODIUM [Concomitant]
  5. NIMOTOP [Concomitant]
  6. CEFAZOLIN [Concomitant]
  7. PANTOPRAZOLE SODIUM [Concomitant]
  8. DEXAMETHASONE 0.5MG TAB [Concomitant]
  9. NS WITH KCL [Concomitant]

REACTIONS (6)
  - CONVULSION [None]
  - INFUSION RELATED REACTION [None]
  - MEDICATION ERROR [None]
  - NO THERAPEUTIC RESPONSE [None]
  - SENSORY LOSS [None]
  - UNRESPONSIVE TO STIMULI [None]
